FAERS Safety Report 11516168 (Version 2)
Quarter: 2016Q1

REPORT INFORMATION
  Report Type: Spontaneous
  Country: US (occurrence: US)
  Receive Date: 20150917
  Receipt Date: 20160226
  Transmission Date: 20160525
  Serious: No
  Sender: FDA-Public Use
  Company Number: PHEH2015US017481

PATIENT
  Age: 43 Year
  Sex: Female

DRUGS (7)
  1. TRILEPTAL [Suspect]
     Active Substance: OXCARBAZEPINE
     Dosage: 360 MG, UNK
     Route: 065
  2. PROMETRIUM [Concomitant]
     Active Substance: PROGESTERONE
     Indication: PRODUCT USED FOR UNKNOWN INDICATION
     Dosage: UNK
     Route: 065
  3. VIVELLE-DOT [Suspect]
     Active Substance: ESTRADIOL
     Indication: PRODUCT USED FOR UNKNOWN INDICATION
     Route: 062
  4. TRILEPTAL [Suspect]
     Active Substance: OXCARBAZEPINE
     Indication: NEURALGIA
     Dosage: 150 MG, UNK
     Route: 065
     Dates: start: 201410
  5. TRILEPTAL [Suspect]
     Active Substance: OXCARBAZEPINE
     Dosage: 450 MG, UNK
     Route: 065
  6. TRILEPTAL [Suspect]
     Active Substance: OXCARBAZEPINE
     Dosage: 300 MG, UNK
     Route: 065
  7. ESTROGEN [Concomitant]
     Active Substance: ESTRONE\SUS SCROFA OVARY
     Indication: PRODUCT USED FOR UNKNOWN INDICATION
     Dosage: UNK
     Route: 065

REACTIONS (16)
  - Pain [Unknown]
  - Oedema [Unknown]
  - Hyponatraemia [Recovering/Resolving]
  - Amnesia [Recovered/Resolved]
  - Off label use [Unknown]
  - Headache [Unknown]
  - Chest pain [Unknown]
  - Asthenia [Recovering/Resolving]
  - Vertigo [Unknown]
  - Feeling abnormal [Recovering/Resolving]
  - Arthralgia [Unknown]
  - Arthritis [Unknown]
  - Migraine [Recovering/Resolving]
  - Dizziness [Unknown]
  - Hyperprolactinaemia [Unknown]
  - Alopecia [Unknown]

NARRATIVE: CASE EVENT DATE: 201505
